FAERS Safety Report 17479998 (Version 1)
Quarter: 2020Q1

REPORT INFORMATION
  Report Type: Spontaneous
  Country: US (occurrence: US)
  Receive Date: 20200228
  Receipt Date: 20200228
  Transmission Date: 20200409
  Serious: No
  Sender: FDA-Public Use
  Company Number: US-BAUSCH-BL-2020-004064

PATIENT

DRUGS (1)
  1. LUMIFY [Suspect]
     Active Substance: BRIMONIDINE TARTRATE
     Indication: OCULAR HYPERAEMIA
     Dosage: ONE DROP IN LEFT EYE
     Route: 047

REACTIONS (4)
  - Therapeutic product effect incomplete [Unknown]
  - Eye paraesthesia [Unknown]
  - Lacrimation increased [Unknown]
  - Ocular discomfort [Unknown]
